FAERS Safety Report 14741092 (Version 1)
Quarter: 2018Q2

REPORT INFORMATION
  Report Type: Spontaneous
  Country: JP (occurrence: JP)
  Receive Date: 20180410
  Receipt Date: 20180410
  Transmission Date: 20180711
  Serious: Yes (Other)
  Sender: FDA-Public Use
  Company Number: JP-GILEAD-2017-0298470AA

PATIENT

DRUGS (1)
  1. HARVONI [Suspect]
     Active Substance: LEDIPASVIR\SOFOSBUVIR
     Indication: HEPATITIS C
     Route: 065

REACTIONS (6)
  - Cerebral haemorrhage [Unknown]
  - Herpes zoster [Unknown]
  - Ascites [Unknown]
  - Pleural effusion [Unknown]
  - Peritonitis bacterial [Unknown]
  - Amyotrophic lateral sclerosis [Unknown]
